FAERS Safety Report 6932608-3 (Version None)
Quarter: 2010Q3

REPORT INFORMATION
  Report Type: 
  Country: None (occurrence: None)
  Receive Date: 20100819
  Receipt Date: 20100810
  Transmission Date: 20110219
  Serious: Yes (Disabling)
  Sender: FDA-Public Use
  Company Number: CZ-ASTRAZENECA-2010SE37546

PATIENT
  Age: 782 Month
  Sex: Male

DRUGS (1)
  1. CRESTOR [Suspect]
     Indication: DYSLIPIDAEMIA
     Route: 048
     Dates: start: 20100501, end: 20100601

REACTIONS (4)
  - BALANCE DISORDER [None]
  - FATIGUE [None]
  - MUSCLE SPASMS [None]
  - MYALGIA [None]
